FAERS Safety Report 12272601 (Version 1)
Quarter: 2016Q2

REPORT INFORMATION
  Report Type: Spontaneous
  Country: US (occurrence: US)
  Receive Date: 20160415
  Receipt Date: 20160415
  Transmission Date: 20160815
  Serious: Yes (Hospitalization)
  Sender: FDA-Public Use
  Company Number: US-UNITED THERAPEUTICS-UNT-2016-005737

PATIENT
  Age: 48 Year
  Sex: Female
  Weight: 102.95 kg

DRUGS (3)
  1. XARELTO [Concomitant]
     Active Substance: RIVAROXABAN
     Indication: PRODUCT USED FOR UNKNOWN INDICATION
  2. REMODULIN [Suspect]
     Active Substance: TREPROSTINIL
     Indication: PULMONARY ARTERIAL HYPERTENSION
     Dosage: 0.055 ?G/KG, CONTINUING
     Route: 041
     Dates: start: 20140912
  3. ADCIRCA [Concomitant]
     Active Substance: TADALAFIL
     Indication: PRODUCT USED FOR UNKNOWN INDICATION

REACTIONS (9)
  - Accidental overdose [Unknown]
  - Headache [Unknown]
  - Flushing [Unknown]
  - Device issue [Unknown]
  - Hypotension [Unknown]
  - Nausea [Unknown]
  - Device leakage [Unknown]
  - Palpitations [Unknown]
  - Vomiting [Unknown]

NARRATIVE: CASE EVENT DATE: 20160408
